FAERS Safety Report 5657221-X (Version None)
Quarter: 2008Q1

REPORT INFORMATION
  Report Type: 
  Country: None (occurrence: None)
  Receive Date: 20080307
  Receipt Date: 20080307
  Transmission Date: 20080703
  Serious: Yes (Life-Threatening, Disabling)
  Sender: FDA-Public Use
  Company Number: None

PATIENT
  Age: 77 Year
  Sex: Female

DRUGS (1)
  1. COUMADIN [Suspect]
     Dosage: PO
     Route: 048

REACTIONS (4)
  - FALL [None]
  - HEADACHE [None]
  - NAUSEA [None]
  - VOMITING [None]
